FAERS Safety Report 8146138 (Version 3)
Quarter: 2012Q4

REPORT INFORMATION
  Report Type: 
  Country: US (occurrence: US)
  Receive Date: 20110921
  Receipt Date: 20120831
  Transmission Date: 20130627
  Serious: Yes (Hospitalization)
  Sender: FDA-Public Use
  Company Number: US-BAYER-2011-085489

PATIENT
  Age: 30 Year
  Sex: Female
  Weight: 72.56 kg

DRUGS (6)
  1. YAZ [Suspect]
     Indication: PREMENSTRUAL SYNDROME
     Dosage: UNK
     Dates: end: 2007
  2. LEVOTHYROXINE [Concomitant]
     Indication: HYPOTHYROIDISM
     Dosage: 100 ?g, QD
     Dates: start: 2006
  3. PROPRANOLOL [Concomitant]
     Dosage: 20 mg, TID
  4. MULTIVITAMIN [Concomitant]
  5. METOPROLOL [Concomitant]
     Indication: HEART RATE IRREGULAR
     Dosage: UNK
     Dates: start: 2007, end: 2008
  6. METOPROLOL [Concomitant]
     Indication: ESSENTIAL TREMOR

REACTIONS (4)
  - Pulmonary embolism [Recovered/Resolved]
  - Injury [Recovered/Resolved]
  - Pain [Recovered/Resolved]
  - Fear [None]
